FAERS Safety Report 22646375 (Version 1)
Quarter: 2023Q2

REPORT INFORMATION
  Report Type: Spontaneous
  Country: US (occurrence: None)
  Receive Date: 20230623
  Receipt Date: 20230623
  Transmission Date: 20230722
  Serious: Yes (Death)
  Sender: FDA-Public Use
  Company Number: None

PATIENT
  Sex: Female

DRUGS (1)
  1. TADLIQ [Suspect]
     Active Substance: TADALAFIL
     Dosage: 15MG DAILY OTHER?

REACTIONS (1)
  - Death [None]
